FAERS Safety Report 5806127-1 (Version None)
Quarter: 2008Q3

REPORT INFORMATION
  Report Type: 
  Country: None (occurrence: None)
  Receive Date: 20080710
  Receipt Date: 20080630
  Transmission Date: 20090109
  Serious: Yes (Hospitalization)
  Sender: FDA-Public Use
  Company Number: US-MERCK-0705USA02874

PATIENT
  Age: 79 Year
  Sex: Female

DRUGS (1)
  1. FOSAMAX [Suspect]
     Indication: OSTEOPOROSIS
     Route: 048
     Dates: start: 19980101, end: 20060501

REACTIONS (11)
  - ASTHENIA [None]
  - ATRIAL FIBRILLATION [None]
  - CARDIAC FAILURE CONGESTIVE [None]
  - CHEST PAIN [None]
  - COLON CANCER [None]
  - DEMENTIA ALZHEIMER'S TYPE [None]
  - DENTAL CARIES [None]
  - DIABETES MELLITUS [None]
  - FALL [None]
  - HYPERTENSION [None]
  - TOOTH EXTRACTION [None]
